FAERS Safety Report 25390966 (Version 1)
Quarter: 2025Q2

REPORT INFORMATION
  Report Type: Spontaneous
  Country: TW (occurrence: TW)
  Receive Date: 20250603
  Receipt Date: 20250603
  Transmission Date: 20250717
  Serious: Yes (Death, Hospitalization)
  Sender: BEIGENE
  Company Number: TW-BEIGENE-BGN-2025-008764

PATIENT
  Age: 69 Year
  Weight: 89 kg

DRUGS (2)
  1. BRUKINSA [Suspect]
     Active Substance: ZANUBRUTINIB
     Indication: Mantle cell lymphoma
     Dosage: 320 MILLIGRAM, QD
  2. TENOFOVIR ALAFENAMIDE [Concomitant]
     Active Substance: TENOFOVIR ALAFENAMIDE
     Indication: Viral hepatitis carrier
     Dosage: 25 MILLIGRAM, QD

REACTIONS (4)
  - Sudden death [Fatal]
  - Chest discomfort [Unknown]
  - Acute myocardial infarction [Unknown]
  - Coronary artery disease [Unknown]
